FAERS Safety Report 6669120-5 (Version None)
Quarter: 2010Q2

REPORT INFORMATION
  Report Type: 
  Country: None (occurrence: None)
  Receive Date: 20100402
  Receipt Date: 20100323
  Transmission Date: 20101027
  Serious: Yes (Hospitalization)
  Sender: FDA-Public Use
  Company Number: 8052619

PATIENT
  Sex: Female
  Weight: 102.4 kg

DRUGS (8)
  1. CERTOLIZUMAB PEGOL (CERTOLIZUMAB PEGOL) [Suspect]
     Indication: RHEUMATOID ARTHRITIS
     Dosage: (400 MG 1X/ 2 WEEKS SUBCUTANEOUS) ; SEE IMAGE
     Route: 058
     Dates: start: 20051130, end: 20060322
  2. CERTOLIZUMAB PEGOL (CERTOLIZUMAB PEGOL) [Suspect]
     Indication: RHEUMATOID ARTHRITIS
     Dosage: (400 MG 1X/ 2 WEEKS SUBCUTANEOUS) ; SEE IMAGE
     Route: 058
     Dates: start: 20060419, end: 20071212
  3. CERTOLIZUMAB PEGOL (CERTOLIZUMAB PEGOL) [Suspect]
     Indication: RHEUMATOID ARTHRITIS
     Dosage: (400 MG 1X/ 2 WEEKS SUBCUTANEOUS) ; SEE IMAGE
     Route: 058
     Dates: start: 20071212, end: 20090925
  4. METHOTREXATE [Concomitant]
  5. MELOXICAM [Concomitant]
  6. METHYLPREDNISOLONE [Concomitant]
  7. ACCUZIDE [Concomitant]
  8. OMEPRAZOLE [Concomitant]

REACTIONS (5)
  - OSTEOPOROSIS [None]
  - PAIN [None]
  - PURULENCE [None]
  - STAPHYLOCOCCAL INFECTION [None]
  - UTERINE HAEMORRHAGE [None]
